FAERS Safety Report 6217065-7 (Version None)
Quarter: 2009Q2

REPORT INFORMATION
  Report Type: 
  Country: None (occurrence: None)
  Receive Date: 20090606
  Receipt Date: 20090310
  Transmission Date: 20091009
  Serious: Yes (Other)
  Sender: FDA-Public Use
  Company Number: US-PFIZER INC-2009181870

PATIENT
  Sex: Male

DRUGS (2)
  1. LYRICA [Suspect]
  2. GABAPENTIN [Suspect]

REACTIONS (4)
  - DRUG INEFFECTIVE [None]
  - MALAISE [None]
  - SURGERY [None]
  - VOMITING [None]
